FAERS Safety Report 4773324-6 (Version None)
Quarter: 2005Q3

REPORT INFORMATION
  Report Type: 
  Country: None (occurrence: None)
  Receive Date: 20050916
  Receipt Date: 20050902
  Transmission Date: 20060218
  Serious: Yes (Hospitalization)
  Sender: FDA-Public Use
  Company Number: 2005BI015490

PATIENT
  Age: 64 Year
  Sex: Female

DRUGS (3)
  1. AVONEX [Suspect]
     Indication: MULTIPLE SCLEROSIS
     Dosage: 30 UG;QW; IM
     Route: 030
     Dates: start: 20000701
  2. AVONEX [Suspect]
     Indication: MULTIPLE SCLEROSIS
     Dosage: 30 UG;QW; IM
     Route: 030
  3. INSULIN [Concomitant]

REACTIONS (5)
  - DIABETES MELLITUS INSULIN-DEPENDENT [None]
  - HYPERGLYCAEMIA [None]
  - INSULIN-REQUIRING TYPE II DIABETES MELLITUS [None]
  - MOVEMENT DISORDER [None]
  - TREMOR [None]
